FAERS Safety Report 10355171 (Version 1)
Quarter: 2014Q3

REPORT INFORMATION
  Report Type: Spontaneous
  Country: US (occurrence: None)
  Receive Date: 20140730
  Receipt Date: 20140730
  Transmission Date: 20150326
  Serious: Yes (Death, Hospitalization)
  Sender: FDA-Public Use
  Company Number: None

PATIENT
  Age: 66 Year
  Sex: Female
  Weight: 115.9 kg

DRUGS (2)
  1. CYCLOPHOSPHAMIDE. [Suspect]
     Active Substance: CYCLOPHOSPHAMIDE
     Dates: end: 20140618
  2. TAXOTERE [Suspect]
     Active Substance: DOCETAXEL
     Dates: end: 20140618

REACTIONS (19)
  - Fluid retention [None]
  - Mental status changes [None]
  - Neutropenia [None]
  - Haematocrit decreased [None]
  - Pleural effusion [None]
  - Pulmonary embolism [None]
  - Dilatation ventricular [None]
  - Vomiting [None]
  - Pneumonia [None]
  - Left ventricular dysfunction [None]
  - Metabolic acidosis [None]
  - Ventricular hypokinesia [None]
  - Pulseless electrical activity [None]
  - Myocardial infarction [None]
  - Leukopenia [None]
  - Platelet count decreased [None]
  - Haemoglobin decreased [None]
  - Aspiration [None]
  - Staphylococcus test positive [None]

NARRATIVE: CASE EVENT DATE: 20140629
